FAERS Safety Report 4691940-7 (Version None)
Quarter: 2005Q2

REPORT INFORMATION
  Report Type: 
  Country: None (occurrence: None)
  Receive Date: 20050614
  Receipt Date: 20050601
  Transmission Date: 20051028
  Serious: No
  Sender: FDA-Public Use
  Company Number: US014939

PATIENT
  Age: 24 Month
  Sex: Female

DRUGS (1)
  1. ACTIQ [Suspect]
     Dosage: 1600 UG ONCE BUCCAL
     Route: 002
     Dates: start: 20030410, end: 20030410

REACTIONS (3)
  - ACCIDENTAL EXPOSURE [None]
  - LETHARGY [None]
  - SOMNOLENCE [None]
